FAERS Safety Report 7522824-4 (Version None)
Quarter: 2011Q2

REPORT INFORMATION
  Report Type: 
  Country: None (occurrence: None)
  Receive Date: 20110603
  Receipt Date: 20110531
  Transmission Date: 20111010
  Serious: Yes (Hospitalization, Disabling, Other)
  Sender: FDA-Public Use
  Company Number: US-PFIZER INC-2011050290

PATIENT
  Sex: Female

DRUGS (8)
  1. CHANTIX [Suspect]
     Indication: SMOKING CESSATION THERAPY
     Dosage: STARTER PACK
     Dates: start: 20090401, end: 20090505
  2. SPIRIVA [Concomitant]
     Indication: CHRONIC OBSTRUCTIVE PULMONARY DISEASE
     Dosage: UNK,
     Dates: start: 20070101
  3. ACETYLSALICYLIC ACID [Concomitant]
     Indication: CORONARY ARTERY DISEASE
     Dosage: UNK,
     Dates: start: 20010101
  4. ISOSORBIDE MONONITRATE [Concomitant]
     Indication: CORONARY ARTERY DISEASE
     Dosage: UNK,
     Dates: start: 20070101, end: 20100101
  5. PLAVIX [Concomitant]
     Indication: CORONARY ARTERY DISEASE
     Dosage: UNK,
     Dates: start: 20060101
  6. ZOCOR [Concomitant]
     Indication: HYPERLIPIDAEMIA
     Dosage: UNK,
     Dates: start: 20070101
  7. ADVAIR DISKUS 100/50 [Concomitant]
     Indication: CHRONIC OBSTRUCTIVE PULMONARY DISEASE
     Dosage: UNK,
     Dates: start: 20070101
  8. NORVASC [Concomitant]
     Indication: HYPERTENSION
     Dosage: UNK,
     Dates: start: 20010101

REACTIONS (5)
  - ANXIETY [None]
  - VASCULITIS [None]
  - DEPRESSION [None]
  - GANGRENE [None]
  - NERVE INJURY [None]
